FAERS Safety Report 5176375-5 (Version None)
Quarter: 2006Q4

REPORT INFORMATION
  Report Type: 
  Country: None (occurrence: None)
  Receive Date: 20061207
  Receipt Date: 20061127
  Transmission Date: 20070319
  Serious: Yes (Hospitalization)
  Sender: FDA-Public Use
  Company Number: GXKR2006NL07761

PATIENT
  Age: 64 Year
  Sex: Male
  Weight: 100 kg

DRUGS (2)
  1. CIMETIDINE HCL [Suspect]
     Indication: DYSPEPSIA
     Dosage: 1 DF, BID, ORAL
     Route: 048
     Dates: start: 19951101, end: 20060927
  2. AVODART [Suspect]
     Indication: HYPERPLASIA
     Dosage: 0.5 MG, QD, ORAL
     Route: 048
     Dates: start: 20051025, end: 20061101

REACTIONS (1)
  - MALIGNANT NIPPLE NEOPLASM MALE [None]
